FAERS Safety Report 20751510 (Version 1)
Quarter: 2022Q2

REPORT INFORMATION
  Report Type: Spontaneous
  Country: US (occurrence: US)
  Receive Date: 20220426
  Receipt Date: 20220426
  Transmission Date: 20220721
  Serious: Yes (Other)
  Sender: FDA-Public Use
  Company Number: US-SUNOVION-2022SUN001286

PATIENT
  Sex: Female

DRUGS (1)
  1. LATUDA [Suspect]
     Active Substance: LURASIDONE HYDROCHLORIDE
     Indication: Product used for unknown indication
     Dosage: 160 MG (LATUDA 80 MG 2 TABLETS EQUAL TO 160MG )
     Route: 048

REACTIONS (2)
  - Tardive dyskinesia [Unknown]
  - Product administration error [Unknown]
